FAERS Safety Report 13068062 (Version 2)
Quarter: 2017Q1

REPORT INFORMATION
  Report Type: Report from Study
  Country: IN (occurrence: IN)
  Receive Date: 20161228
  Receipt Date: 20170125
  Transmission Date: 20170428
  Serious: Yes (Hospitalization)
  Sender: FDA-Public Use
  Company Number: PHHY2016IN178748

PATIENT
  Age: 70 Year
  Sex: Male
  Weight: 56 kg

DRUGS (2)
  1. SEQUADRA INHALER [Suspect]
     Active Substance: GLYCOPYRRONIUM\INDACATEROL
     Indication: CHRONIC OBSTRUCTIVE PULMONARY DISEASE
     Dosage: 1 DF (50 UG GLYCOPYRRONIUM, 110 UG INDACATEROL), UNK
     Route: 055
     Dates: start: 20161107, end: 20161215
  2. SEQUADRA INHALER [Suspect]
     Active Substance: GLYCOPYRRONIUM\INDACATEROL
     Dosage: 1 DF (50 UG GLYCOPYRRONIUM, 110 UG INDACATEROL), UNK
     Route: 055
     Dates: start: 20170118

REACTIONS (3)
  - Decreased appetite [Recovered/Resolved]
  - Productive cough [Recovered/Resolved]
  - Wheezing [Recovered/Resolved]

NARRATIVE: CASE EVENT DATE: 20161215
